FAERS Safety Report 23997973 (Version 3)
Quarter: 2024Q3

REPORT INFORMATION
  Report Type: Spontaneous
  Country: US (occurrence: US)
  Receive Date: 20240621
  Receipt Date: 20240920
  Transmission Date: 20241016
  Serious: Yes (Other)
  Sender: SANOFI AVENTIS
  Company Number: US-SA-SAC20240612000778

PATIENT
  Age: 20 Year
  Sex: Male

DRUGS (2)
  1. ALPROLIX [Suspect]
     Active Substance: EFTRENONACOG ALFA
     Dosage: 5500 U (+/-10%); EVERY 48 HOURS
     Route: 065
  2. ALPROLIX [Suspect]
     Active Substance: EFTRENONACOG ALFA
     Dosage: 5500 U (+/-10%); EVERY 48 HOURS
     Route: 065

REACTIONS (4)
  - Internal haemorrhage [Unknown]
  - Haemorrhage [Unknown]
  - Animal attack [Unknown]
  - Appendicectomy [Unknown]

NARRATIVE: CASE EVENT DATE: 20240531
